FAERS Safety Report 7989655-2 (Version None)
Quarter: 2011Q4

REPORT INFORMATION
  Report Type: 
  Country: None (occurrence: None)
  Receive Date: 20111123
  Receipt Date: 20110811
  Transmission Date: 20120403
  Serious: No
  Sender: FDA-Public Use
  Company Number: 333522

PATIENT
  Age: 61 Year
  Sex: Female

DRUGS (1)
  1. VICTOZA [Suspect]
     Indication: TYPE 2 DIABETES MELLITUS
     Dosage: 1.2; 1.8  MG, QD, SUBCUTANEOUS
     Route: 058
     Dates: end: 20110806

REACTIONS (2)
  - DRUG DOSE OMISSION [None]
  - BLOOD GLUCOSE INCREASED [None]
